FAERS Safety Report 8959230 (Version 1)
Quarter: 2012Q4

REPORT INFORMATION
  Report Type: 
  Country: ES (occurrence: ES)
  Receive Date: 20121212
  Receipt Date: 20121212
  Transmission Date: 20130627
  Serious: Yes (Hospitalization)
  Sender: FDA-Public Use
  Company Number: ES-ELI_LILLY_AND_COMPANY-ES201211009383

PATIENT
  Age: 77 Year
  Sex: Female
  Weight: 45 kg

DRUGS (6)
  1. FORSTEO [Suspect]
     Indication: OSTEOPOROSIS
     Dosage: 20mcg/day
     Route: 058
     Dates: start: 20120119, end: 20120708
  2. FORSTEO [Suspect]
     Dosage: 20mcg/day
     Route: 058
     Dates: start: 20120912, end: 20121109
  3. FORSTEO [Suspect]
     Dosage: 20mcg/day
     Route: 058
     Dates: start: 20121116
  4. ALPRAZOLAM [Concomitant]
     Indication: INSOMNIA
     Dosage: 0.5mg/q 24h
     Route: 048
  5. RISPERDAL [Concomitant]
     Indication: INSOMNIA
     Dosage: 1 d/f
     Route: 048
  6. PROMETAX [Concomitant]
     Indication: AMNESIA
     Dosage: 9.5mg/daily
     Route: 062

REACTIONS (2)
  - Diverticulitis [Recovered/Resolved]
  - Nephrolithiasis [Recovered/Resolved]
